FAERS Safety Report 18929364 (Version 1)
Quarter: 2021Q1

REPORT INFORMATION
  Report Type: Spontaneous
  Country: US (occurrence: US)
  Receive Date: 20210223
  Receipt Date: 20210223
  Transmission Date: 20210420
  Serious: No
  Sender: FDA-Public Use
  Company Number: US-MYLANLABS-2021M1009395

PATIENT
  Age: 38 Year
  Sex: Female
  Weight: 64 kg

DRUGS (1)
  1. WIXELA INHUB [Suspect]
     Active Substance: FLUTICASONE PROPIONATE\SALMETEROL XINAFOATE
     Indication: ASTHMA
     Dosage: 250/50 MICROGRAM TWICE DAILY
     Route: 055
     Dates: start: 2021, end: 2021

REACTIONS (3)
  - Palpitations [Recovered/Resolved]
  - Chest pain [Recovered/Resolved]
  - Feeling jittery [Recovered/Resolved]

NARRATIVE: CASE EVENT DATE: 2021
